FAERS Safety Report 20839932 (Version 1)
Quarter: 2022Q2

REPORT INFORMATION
  Report Type: Spontaneous
  Country: US (occurrence: None)
  Receive Date: 20220516
  Receipt Date: 20220516
  Transmission Date: 20220721
  Serious: Yes (Hospitalization)
  Sender: FDA-Public Use
  Company Number: None

PATIENT
  Age: 64 Year
  Sex: Female

DRUGS (2)
  1. XOLAIR [Suspect]
     Active Substance: OMALIZUMAB
     Indication: Urticaria
     Dosage: FREQUENCY : MONTHLY;?INJECT TWO SYRINGES (300 MG) UNDER THE SKIN (SUBCUTANEOUS  INJECTION) ONCE EVER
     Route: 058
     Dates: start: 20220309
  2. XOLAIR [Suspect]
     Active Substance: OMALIZUMAB
     Dosage: OTHER QUANTITY : TWO SYRINGES;?FREQUENCY : MONTHLY;?
     Route: 058

REACTIONS (3)
  - Quality of life decreased [None]
  - Asthma [None]
  - Surgery [None]

NARRATIVE: CASE EVENT DATE: 20220506
